FAERS Safety Report 9366215 (Version 2)
Quarter: 2013Q3

REPORT INFORMATION
  Report Type: Spontaneous
  Country: US (occurrence: US)
  Receive Date: 20130625
  Receipt Date: 20130701
  Transmission Date: 20140515
  Serious: Yes (Other)
  Sender: FDA-Public Use
  Company Number: US-JNJFOC-20130611707

PATIENT
  Age: 82 Year
  Sex: Male
  Weight: 81.65 kg

DRUGS (3)
  1. TYLENOL ARTHRITIS PAIN ER [Suspect]
     Route: 048
  2. TYLENOL ARTHRITIS PAIN ER [Suspect]
     Indication: ARTHRALGIA
     Route: 048
     Dates: end: 20130615
  3. VITAMIN [Concomitant]
     Indication: PRODUCT USED FOR UNKNOWN INDICATION
     Route: 065

REACTIONS (1)
  - Asthma [Not Recovered/Not Resolved]
